FAERS Safety Report 25976940 (Version 1)
Quarter: 2025Q4

REPORT INFORMATION
  Report Type: Spontaneous
  Country: JP (occurrence: JP)
  Receive Date: 20251030
  Receipt Date: 20251030
  Transmission Date: 20260117
  Serious: Yes (Other)
  Sender: MERCK SHARP & DOHME LLC
  Company Number: JP-009507513-2327434

PATIENT
  Age: 43 Year
  Sex: Male

DRUGS (5)
  1. LAGEVRIO [Suspect]
     Active Substance: MOLNUPIRAVIR
     Indication: COVID-19 treatment
     Dosage: 800MG TWICE DAILY, STRENGTH: 200 MG
     Route: 048
     Dates: start: 20250829, end: 20250831
  2. TRANEXAMIC ACID [Suspect]
     Active Substance: TRANEXAMIC ACID
     Dosage: TIME INTERVAL: 0.33333333 DAYS: 250MG 3 TIMES DAILY
     Route: 048
     Dates: start: 20250829
  3. HERBALS [Suspect]
     Active Substance: HERBALS
     Route: 048
     Dates: start: 20250829
  4. GETACATETIDE ACETATE [Suspect]
     Active Substance: GETACATETIDE ACETATE
     Dosage: TIME INTERVAL: 0.33333333 DAYS: 15MG 3 TIMES DAILY
     Route: 048
     Dates: start: 20250829
  5. CALONAL [Suspect]
     Active Substance: ACETAMINOPHEN
     Dosage: 500MG ONCE DAILY
     Route: 048
     Dates: start: 20250829

REACTIONS (2)
  - Drug eruption [Recovered/Resolved]
  - Feeling abnormal [Unknown]

NARRATIVE: CASE EVENT DATE: 20250831
